FAERS Safety Report 16254999 (Version 1)
Quarter: 2019Q2

REPORT INFORMATION
  Report Type: Spontaneous
  Country: US (occurrence: US)
  Receive Date: 20190429
  Receipt Date: 20190429
  Transmission Date: 20190711
  Serious: Yes (Disabling)
  Sender: FDA-Public Use
  Company Number: None

PATIENT
  Age: 59 Year
  Sex: Female
  Weight: 99 kg

DRUGS (5)
  1. DALFAMPRIDINE ER 10MG, EXTENDED RELEASE, 12 HR, GENERIC FOR AMPYRA [Suspect]
     Active Substance: DALFAMPRIDINE
     Indication: MULTIPLE SCLEROSIS
     Dosage: ?          QUANTITY:1 TABLET(S);?
     Route: 048
  2. PROBIOTIC [Concomitant]
     Active Substance: PROBIOTICS NOS
  3. CRANBERRY. [Concomitant]
     Active Substance: CRANBERRY
  4. VITAMIN D3 [Concomitant]
     Active Substance: CHOLECALCIFEROL
  5. MULTAQ [Concomitant]
     Active Substance: DRONEDARONE

REACTIONS (6)
  - Fall [None]
  - Condition aggravated [None]
  - Product complaint [None]
  - Product formulation issue [None]
  - Loss of personal independence in daily activities [None]
  - Muscular weakness [None]

NARRATIVE: CASE EVENT DATE: 20181015
